FAERS Safety Report 9620248 (Version 1)
Quarter: 2013Q4

REPORT INFORMATION
  Report Type: Spontaneous
  Country: US (occurrence: US)
  Receive Date: 20131014
  Receipt Date: 20131014
  Transmission Date: 20140711
  Serious: No
  Sender: FDA-Public Use
  Company Number: US-ALLERGAN-1310042US

PATIENT
  Age: 75 Year
  Sex: Female

DRUGS (8)
  1. ALPHAGAN P [Suspect]
     Indication: GLAUCOMA
     Dosage: 2 GTT, BID
     Route: 047
  2. CRESTOR [Concomitant]
     Indication: BLOOD CHOLESTEROL
  3. HCTZ [Concomitant]
     Indication: DIURETIC THERAPY
     Dosage: 25 MG, UNK
     Route: 048
  4. SYNTHROID [Concomitant]
     Indication: THYROID DISORDER
     Dosage: 0.5 UNK, UNK
     Route: 048
  5. AMLODIPINE [Concomitant]
     Indication: BLOOD PRESSURE
     Dosage: 5.40 MG, UNK
  6. LOTREL [Concomitant]
     Indication: BLOOD PRESSURE
  7. ASA [Concomitant]
     Indication: PRODUCT USED FOR UNKNOWN INDICATION
     Dosage: UNK
  8. VITAMINS                           /00067501/ [Concomitant]
     Indication: SUPPLEMENTATION THERAPY

REACTIONS (2)
  - Madarosis [Unknown]
  - Madarosis [Unknown]
